FAERS Safety Report 16973965 (Version 1)
Quarter: 2019Q4

REPORT INFORMATION
  Report Type: Spontaneous
  Country: US (occurrence: US)
  Receive Date: 20190912
  Receipt Date: 20190912
  Transmission Date: 20200122
  Serious: No
  Sender: FDA-Public Use
  Company Number: None

PATIENT
  Sex: Male
  Weight: 73.94 kg

DRUGS (1)
  1. BALVERSA [Suspect]
     Active Substance: ERDAFITINIB
     Indication: BLADDER CANCER
     Dosage: ?          OTHER FREQUENCY:2TQD;?
     Dates: start: 20190802

REACTIONS (2)
  - Dyspnoea [None]
  - Blood urine present [None]
